FAERS Safety Report 17622777 (Version 1)
Quarter: 2020Q2

REPORT INFORMATION
  Report Type: Spontaneous
  Country: US (occurrence: US)
  Receive Date: 20200403
  Receipt Date: 20200403
  Transmission Date: 20200713
  Serious: No
  Sender: FDA-Public Use
  Company Number: None

PATIENT
  Age: 66 Year
  Sex: Female
  Weight: 49.95 kg

DRUGS (13)
  1. EXCEDRIN MIGRAINE 250-250-65 MG, ORAL [Concomitant]
  2. TRAMADOL 50MG ,ORAL [Concomitant]
  3. VITAMIN D 1.25 MG, ORAL [Concomitant]
  4. ALDACTONE 25MG, ORAL [Concomitant]
  5. GABAPENTIN 300MG, ORAL [Concomitant]
     Active Substance: GABAPENTIN
  6. CALTRATE 600 + D3, 600 - 800MG, ORAL [Concomitant]
  7. IBUPROFEN 100MG, ORAL [Concomitant]
  8. PIQRAY [Suspect]
     Active Substance: ALPELISIB
     Indication: BREAST CANCER
     Route: 048
     Dates: start: 20200120
  9. OMEPRAZOLE 20MG, ORAL [Concomitant]
  10. BAYER ASPIRIN, 325MG, ORAL [Concomitant]
  11. LACTULOSE 10G/15ML, ORAL [Concomitant]
  12. REGLAN 5MG, ORAL [Concomitant]
  13. MULTI VITAMIN DAILY, ORAL [Concomitant]

REACTIONS (3)
  - Burning sensation [None]
  - Malaise [None]
  - Eating disorder [None]

NARRATIVE: CASE EVENT DATE: 20200401
